FAERS Safety Report 7203179-1 (Version None)
Quarter: 2010Q4

REPORT INFORMATION
  Report Type: 
  Country: None (occurrence: None)
  Receive Date: 20101230
  Receipt Date: 20101220
  Transmission Date: 20110411
  Serious: Yes (Hospitalization, Other)
  Sender: FDA-Public Use
  Company Number: US-BIOGENIDEC-2010BI041332

PATIENT
  Age: 46 Year
  Sex: Female
  Weight: 75 kg

DRUGS (5)
  1. TYSABRI [Suspect]
     Indication: MULTIPLE SCLEROSIS
     Route: 042
     Dates: start: 20100916, end: 20101111
  2. AMBIEN CR [Concomitant]
     Indication: PRODUCT USED FOR UNKNOWN INDICATION
  3. SOMA [Concomitant]
     Indication: MUSCLE SPASMS
     Route: 048
  4. NEURONTIN [Concomitant]
     Indication: PAIN
     Route: 048
  5. HYDROXYZINE [Concomitant]
     Indication: PRODUCT USED FOR UNKNOWN INDICATION
     Route: 048

REACTIONS (10)
  - APHASIA [None]
  - CEREBRAL INFARCTION [None]
  - CHOLELITHIASIS [None]
  - DYSURIA [None]
  - FALL [None]
  - LHERMITTE'S SIGN [None]
  - MULTIPLE SCLEROSIS RELAPSE [None]
  - RENAL FAILURE ACUTE [None]
  - THINKING ABNORMAL [None]
  - URINARY TRACT INFECTION [None]
